FAERS Safety Report 9980709 (Version 1)
Quarter: 2014Q1

REPORT INFORMATION
  Report Type: Spontaneous
  Country: US (occurrence: US)
  Receive Date: 20140307
  Receipt Date: 20140307
  Transmission Date: 20141002
  Serious: Yes (Death)
  Sender: FDA-Public Use
  Company Number: US-BRISTOL-MYERS SQUIBB COMPANY-20325973

PATIENT
  Age: 69 Year
  Sex: Male

DRUGS (1)
  1. BARACLUDE [Suspect]
     Dosage: STARTED IN JUNE OR JULY OF 2010
     Dates: start: 2010

REACTIONS (2)
  - Cardiac disorder [Fatal]
  - Urinary tract infection [Unknown]
